FAERS Safety Report 12166327 (Version 1)
Quarter: 2016Q1

REPORT INFORMATION
  Report Type: Report from Study
  Country: US (occurrence: US)
  Receive Date: 20160309
  Receipt Date: 20160309
  Transmission Date: 20160526
  Serious: Yes (Hospitalization, Other)
  Sender: FDA-Public Use
  Company Number: US-BAXALTA-2016BLT001345

PATIENT
  Sex: Female

DRUGS (1)
  1. HYQVIA [Suspect]
     Active Substance: HUMAN IMMUNOGLOBULIN G\HYALURONIDASE RECOMBINANT HUMAN
     Indication: PRIMARY IMMUNODEFICIENCY SYNDROME
     Route: 065

REACTIONS (7)
  - Balance disorder [Unknown]
  - Asthenia [Unknown]
  - Swelling [Unknown]
  - Sinusitis [Unknown]
  - Fatigue [Unknown]
  - White blood cell count abnormal [Unknown]
  - Sinus disorder [Unknown]
